FAERS Safety Report 12382083 (Version 1)
Quarter: 2016Q2

REPORT INFORMATION
  Report Type: Spontaneous
  Country: US (occurrence: None)
  Receive Date: 20160517
  Receipt Date: 20160517
  Transmission Date: 20160815
  Serious: Yes (Hospitalization)
  Sender: FDA-Public Use
  Company Number: None

PATIENT
  Age: 67 Year
  Sex: Male
  Weight: 97.07 kg

DRUGS (1)
  1. RIVAROXABAN, 15 MG [Suspect]
     Active Substance: RIVAROXABAN
     Route: 048
     Dates: start: 20160303, end: 20160316

REACTIONS (7)
  - Retroperitoneal haematoma [None]
  - Chest pain [None]
  - Acute coronary syndrome [None]
  - Acute kidney injury [None]
  - Nausea [None]
  - Vomiting [None]
  - Haematocrit decreased [None]

NARRATIVE: CASE EVENT DATE: 20160306
